FAERS Safety Report 8438818-0 (Version None)
Quarter: 2012Q2

REPORT INFORMATION
  Report Type: 
  Country: None (occurrence: None)
  Receive Date: 20120608
  Receipt Date: 20120531
  Transmission Date: 20120825
  Serious: Yes (Hospitalization, Other)
  Sender: FDA-Public Use
  Company Number: 2012SP010885

PATIENT
  Sex: Male

DRUGS (7)
  1. RIBAVIRIN [Suspect]
     Indication: HEPATITIS C
     Dates: start: 19970101, end: 19971101
  2. RIBAVIRIN [Suspect]
     Indication: HEPATITIS C
     Dates: start: 20111215, end: 20120309
  3. PEGASYS [Suspect]
     Indication: HEPATITIS C
     Dates: start: 20111215, end: 20120309
  4. TELAPREVIR [Suspect]
     Indication: HEPATITIS C
     Dates: start: 20120112, end: 20120309
  5. PEG-INTRON [Suspect]
     Indication: HEPATITIS C
     Dates: start: 20070101, end: 20080101
  6. PEG-INTRON [Suspect]
     Indication: HEPATITIS C
     Dates: start: 19970101, end: 19971101
  7. PEG-INTRON [Suspect]
     Indication: HEPATITIS C
     Dates: start: 20111215

REACTIONS (9)
  - CONDITION AGGRAVATED [None]
  - COUGH [None]
  - OROPHARYNGEAL PAIN [None]
  - INCREASED UPPER AIRWAY SECRETION [None]
  - HEPATITIS C [None]
  - DYSPHAGIA [None]
  - WHITE BLOOD CELL COUNT DECREASED [None]
  - COLON CANCER [None]
  - RED BLOOD CELL COUNT DECREASED [None]
